FAERS Safety Report 6104183-7 (Version None)
Quarter: 2009Q1

REPORT INFORMATION
  Report Type: 
  Country: None (occurrence: None)
  Receive Date: 20090305
  Receipt Date: 20090218
  Transmission Date: 20090719
  Serious: Yes (Hospitalization, Disabling, Other)
  Sender: FDA-Public Use
  Company Number: FR-GENENTECH-278166

PATIENT
  Sex: Female

DRUGS (7)
  1. BEVACIZUMAB [Suspect]
     Indication: RECTAL CANCER
     Dosage: 295 MG, UNK
     Route: 042
     Dates: start: 20080416, end: 20080611
  2. OXALIPLATIN [Suspect]
     Indication: RECTAL CANCER
     Dosage: 130 MG, UNK
     Route: 042
     Dates: start: 20080416, end: 20080611
  3. FLUOROURACIL [Suspect]
     Indication: RECTAL CANCER
     Dosage: 3160 MG, UNK
     Route: 042
     Dates: start: 20080416, end: 20080612
  4. FOLINIC ACID [Suspect]
     Indication: RECTAL CANCER
     Dosage: 620 MG, UNK
     Route: 042
     Dates: start: 20080416, end: 20080612
  5. STILNOX [Concomitant]
     Indication: DRUG USE FOR UNKNOWN INDICATION
     Dosage: UNK
     Dates: start: 20080318
  6. DAFALGAN [Concomitant]
     Indication: DRUG USE FOR UNKNOWN INDICATION
     Dosage: UNK
     Dates: start: 20080414
  7. DEXERYL (FRANCE) [Concomitant]
     Indication: DRUG USE FOR UNKNOWN INDICATION
     Dosage: UNK
     Dates: start: 20080502, end: 20080725

REACTIONS (2)
  - NEUTROPENIA [None]
  - THROMBOPHLEBITIS [None]
